FAERS Safety Report 15795259 (Version 2)
Quarter: 2019Q3

REPORT INFORMATION
  Report Type: Report from Study
  Country: US (occurrence: US)
  Receive Date: 20190107
  Receipt Date: 20190719
  Transmission Date: 20191004
  Serious: Yes (Hospitalization)
  Sender: FDA-Public Use
  Company Number: PHEH2018US055761

PATIENT
  Age: 30 Year
  Sex: Male

DRUGS (2)
  1. GILENYA [Suspect]
     Active Substance: FINGOLIMOD HYDROCHLORIDE
     Dosage: UNK UNK, QD
     Route: 048
     Dates: start: 20181230
  2. GILENYA [Suspect]
     Active Substance: FINGOLIMOD HYDROCHLORIDE
     Indication: PRODUCT USED FOR UNKNOWN INDICATION
     Dosage: 0.5 MG, QD
     Route: 048
     Dates: start: 2015

REACTIONS (8)
  - Multiple sclerosis relapse [Unknown]
  - Stress [Unknown]
  - Sensory disturbance [Unknown]
  - Headache [Unknown]
  - Gait inability [Unknown]
  - Depression [Unknown]
  - Fatigue [Unknown]
  - Decreased interest [Unknown]

NARRATIVE: CASE EVENT DATE: 201812
